FAERS Safety Report 9223069 (Version 1)
Quarter: 2013Q2

REPORT INFORMATION
  Report Type: Spontaneous
  Country: US (occurrence: US)
  Receive Date: 20130410
  Receipt Date: 20130410
  Transmission Date: 20140414
  Serious: Yes (Hospitalization)
  Sender: FDA-Public Use
  Company Number: US-ROCHE-1211765

PATIENT
  Sex: Female

DRUGS (3)
  1. PEGASYS [Suspect]
     Indication: HEPATITIS C
     Route: 065
     Dates: start: 201302
  2. RIBAVIRIN [Suspect]
     Indication: HEPATITIS C
     Route: 065
     Dates: start: 201302
  3. TELAPREVIR [Suspect]
     Indication: HEPATITIS C
     Route: 065
     Dates: start: 201302

REACTIONS (8)
  - Anaemia [Unknown]
  - White blood cell count decreased [Unknown]
  - Rash [Recovering/Resolving]
  - Swelling face [Unknown]
  - Asthenia [Unknown]
  - Renal disorder [Unknown]
  - Hypertension [Unknown]
  - Withdrawal syndrome [Unknown]
